FAERS Safety Report 8818849 (Version 1)
Quarter: 2012Q4

REPORT INFORMATION
  Report Type: 
  Country: FR (occurrence: FR)
  Receive Date: 20121002
  Receipt Date: 20121002
  Transmission Date: 20130627
  Serious: Yes (Hospitalization)
  Sender: FDA-Public Use
  Company Number: FR-009507513-1202USA01822

PATIENT
  Age: 58 Year
  Sex: Female

DRUGS (6)
  1. EMEND [Suspect]
     Route: 048
     Dates: start: 20111017, end: 20111026
  2. DOMPERIDONE [Suspect]
     Dosage: 1 DF, bid
     Route: 048
     Dates: end: 20111112
  3. EUPANTOL [Suspect]
     Dosage: UNK mg, UNK
     Route: 048
     Dates: end: 20111112
  4. AERIUS [Suspect]
     Dates: start: 20111014, end: 20111030
  5. ONDANSETRON [Suspect]
     Dates: start: 20111017, end: 20111026
  6. PLITICAN [Suspect]
     Route: 042
     Dates: start: 20111017, end: 20111107

REACTIONS (3)
  - Blister [Recovered/Resolved]
  - Rash erythematous [Recovered/Resolved]
  - Pruritus [Recovered/Resolved]
